FAERS Safety Report 13519157 (Version 2)
Quarter: 2017Q2

REPORT INFORMATION
  Report Type: Spontaneous
  Country: US (occurrence: US)
  Receive Date: 20170505
  Receipt Date: 20170512
  Transmission Date: 20170830
  Serious: Yes (Hospitalization, Other)
  Sender: FDA-Public Use
  Company Number: US-INDIVIOR LIMITED-INDV-101080-2017

PATIENT
  Sex: Female

DRUGS (4)
  1. SUBOXONE [Suspect]
     Active Substance: BUPRENORPHINE HYDROCHLORIDE\NALOXONE HYDROCHLORIDE
     Dosage: UNK, STOPPED AND RESTARTED
     Route: 060
     Dates: start: 20160930
  2. SUBOXONE [Suspect]
     Active Substance: BUPRENORPHINE HYDROCHLORIDE\NALOXONE HYDROCHLORIDE
     Dosage: 1/4TH OF FILM MORNING  AND 1/4TH OF FILM IN AFTRENOON
     Route: 060
     Dates: end: 201606
  3. SUBOXONE [Suspect]
     Active Substance: BUPRENORPHINE HYDROCHLORIDE\NALOXONE HYDROCHLORIDE
     Indication: DRUG USE DISORDER
     Dosage: 8MG/2MG PER DAY
     Route: 060
     Dates: start: 20110105
  4. ANTIDEPRESSANTS [Concomitant]
     Active Substance: UNSPECIFIED INGREDIENT
     Indication: DEPRESSION
     Dosage: UNK
     Route: 065

REACTIONS (13)
  - Drug use disorder [Unknown]
  - Asthenia [Unknown]
  - Anxiety [Unknown]
  - Feeling abnormal [Unknown]
  - Drug withdrawal syndrome [Unknown]
  - Intentional underdose [Recovered/Resolved]
  - Product use issue [Unknown]
  - Product preparation error [Unknown]
  - Depression [Unknown]
  - Suicidal ideation [Unknown]
  - Chills [Unknown]
  - Headache [Unknown]
  - Diarrhoea [Unknown]

NARRATIVE: CASE EVENT DATE: 2016
